FAERS Safety Report 10008867 (Version 1)
Quarter: 2014Q1

REPORT INFORMATION
  Report Type: Spontaneous
  Country: DE (occurrence: DE)
  Receive Date: 20140313
  Receipt Date: 20140313
  Transmission Date: 20141002
  Serious: Yes (Other)
  Sender: FDA-Public Use
  Company Number: PHHY2014DE028335

PATIENT
  Age: 6 Year
  Sex: Male

DRUGS (10)
  1. DEXAMETHASONE [Suspect]
     Indication: ACUTE LYMPHOCYTIC LEUKAEMIA
     Dosage: 6 MG/M2, UNK
  2. PEG-ASPARAGINASE [Suspect]
     Indication: ACUTE LYMPHOCYTIC LEUKAEMIA
     Dosage: 1000 U/M^2
  3. VINCRISTINE [Concomitant]
     Indication: ACUTE LYMPHOCYTIC LEUKAEMIA
     Dosage: 1.5 MG/M2, UNK
  4. METHOTREXATE [Concomitant]
     Indication: ACUTE LYMPHOCYTIC LEUKAEMIA
  5. IDARUBICIN [Concomitant]
     Indication: ACUTE LYMPHOCYTIC LEUKAEMIA
     Dosage: 6 MG/M2, UNK
  6. CYTARABINE [Concomitant]
     Indication: ACUTE LYMPHOCYTIC LEUKAEMIA
  7. OSELTAMIVIR [Concomitant]
     Indication: PNEUMONIA INFLUENZAL
  8. ANTIBIOTICS [Concomitant]
     Indication: PNEUMONIA INFLUENZAL
  9. DIURETICS [Concomitant]
     Indication: OEDEMA
  10. HEPARIN [Concomitant]
     Indication: BLOOD VISCOSITY INCREASED
     Dosage: 100 IU/KG, UNK

REACTIONS (1)
  - Hypertriglyceridaemia [Recovered/Resolved]
